FAERS Safety Report 16362945 (Version 1)
Quarter: 2019Q2

REPORT INFORMATION
  Report Type: Spontaneous
  Country: CN (occurrence: CN)
  Receive Date: 20190528
  Receipt Date: 20190528
  Transmission Date: 20190711
  Serious: Yes (Death)
  Sender: FDA-Public Use
  Company Number: PHHY2019CN121977

PATIENT
  Age: 69 Year
  Sex: Male

DRUGS (6)
  1. DEXAMETHASONE. [Suspect]
     Active Substance: DEXAMETHASONE
     Indication: ANGIOCENTRIC LYMPHOMA
     Dosage: 40 MG, QD FROM DAY 1 TO 4
     Route: 042
     Dates: start: 20170519
  2. IFOSFAMIDE. [Suspect]
     Active Substance: IFOSFAMIDE
     Indication: ANGIOCENTRIC LYMPHOMA
     Dosage: 1500 MG/M2, QD FROM DAY 2 TO 4
     Route: 042
     Dates: start: 20170519
  3. ETOPOSIDE. [Suspect]
     Active Substance: ETOPOSIDE
     Indication: ANGIOCENTRIC LYMPHOMA
     Dosage: 70 MG/M2, TID FROM DAY 2 TO 4
     Route: 042
     Dates: start: 20170519
  4. METHOTREXATE. [Suspect]
     Active Substance: METHOTREXATE
     Indication: ANGIOCENTRIC LYMPHOMA
     Dosage: 2 G/M2, UNK
     Route: 042
     Dates: start: 20170519
  5. PEGASPARGASE [Suspect]
     Active Substance: PEGASPARGASE
     Indication: ANGIOCENTRIC LYMPHOMA
     Dosage: 2500 U/M2, ON DAY 2
     Route: 058
     Dates: start: 20170519
  6. MESNA. [Suspect]
     Active Substance: MESNA
     Indication: ANGIOCENTRIC LYMPHOMA
     Dosage: 300 MG/M2, TID FROM DAY 2 TO 4
     Route: 042
     Dates: start: 20170519

REACTIONS (3)
  - Pneumonia [Fatal]
  - Coagulopathy [Fatal]
  - Respiratory failure [Fatal]
